FAERS Safety Report 7472547-5 (Version None)
Quarter: 2011Q2

REPORT INFORMATION
  Report Type: 
  Country: None (occurrence: None)
  Receive Date: 20110511
  Receipt Date: 20100903
  Transmission Date: 20111010
  Serious: No
  Sender: FDA-Public Use
  Company Number: US-AMGEN-TCS435910

PATIENT
  Age: 59 Year
  Sex: Female

DRUGS (16)
  1. METRONIDAZOLE [Concomitant]
     Dosage: 1 %, UNK
     Route: 061
  2. ACETAMINOPHEN [Concomitant]
     Dosage: 325 MG, UNK
  3. LISINOPRIL [Concomitant]
     Dosage: UNK UNK, UNK
  4. MESALAMINE [Concomitant]
     Dosage: UNK UNK, UNK
  5. LEVOTHYROXINE SODIUM [Concomitant]
     Dosage: UNK UNK, UNK
  6. ASPIRIN [Concomitant]
     Dosage: UNK UNK, UNK
  7. FISH OIL [Concomitant]
     Dosage: UNK UNK, UNK
  8. HYDROXYCHLOROQUINE SULFATE [Concomitant]
     Dosage: 200 MG, UNK
  9. NYSTATIN [Concomitant]
     Dosage: UNK UNK, UNK
     Route: 061
  10. ERGOCALCIFEROL [Concomitant]
     Dosage: UNK UNK, UNK
  11. PREDNISONE [Concomitant]
     Dosage: 2.5 MG, UNK
  12. CALCIUM WITH VITAMIN D [Concomitant]
     Dosage: UNK UNK, UNK
  13. VITAMIN B COMPLEX CAP [Concomitant]
     Dosage: UNK UNK, UNK
  14. ENBREL [Suspect]
     Indication: RHEUMATOID ARTHRITIS
     Dosage: 25 MG, 2 TIMES/WK
     Dates: start: 20000328
  15. PREDNISONE [Concomitant]
     Dosage: 1 MG, UNK
  16. SIMVASTATIN [Concomitant]
     Dosage: 40 MG, UNK

REACTIONS (1)
  - INJECTION SITE PAIN [None]
